FAERS Safety Report 9078803 (Version 1)
Quarter: 2013Q1

REPORT INFORMATION
  Report Type: Report from Study
  Country: US (occurrence: US)
  Receive Date: 20130130
  Receipt Date: 20130130
  Transmission Date: 20140127
  Serious: No
  Sender: FDA-Public Use
  Company Number: US-ABBOTT-12P-163-0956623-00

PATIENT
  Age: 54 Year
  Sex: Female

DRUGS (6)
  1. HUMIRA 40 MG/0.8 ML PEN [Suspect]
     Indication: CROHN^S DISEASE
     Dates: start: 201206
  2. GEMFIBROZIL [Concomitant]
     Indication: BLOOD CHOLESTEROL
  3. BENAZEPRIL [Concomitant]
     Indication: BLOOD PRESSURE
  4. LEVOTHYROXINE [Concomitant]
     Indication: THYROID DISORDER
  5. PREDNISONE [Concomitant]
     Indication: PRODUCT USED FOR UNKNOWN INDICATION
  6. PREMPRO [Concomitant]
     Indication: MENOPAUSAL DISORDER

REACTIONS (4)
  - Tooth repair [Not Recovered/Not Resolved]
  - Tooth infection [Not Recovered/Not Resolved]
  - Endodontic procedure [Not Recovered/Not Resolved]
  - Toothache [Not Recovered/Not Resolved]
